FAERS Safety Report 5023796-7 (Version None)
Quarter: 2006Q2

REPORT INFORMATION
  Report Type: 
  Country: None (occurrence: None)
  Receive Date: 20060606
  Receipt Date: 20060523
  Transmission Date: 20061013
  Serious: Yes (Hospitalization)
  Sender: FDA-Public Use
  Company Number: HQWYE518024MAY06

PATIENT
  Age: 70 Year
  Sex: Male

DRUGS (1)
  1. GEMTUZUMAB OZOGAMICIN (GEMTUZUMAB OZOGAMICIN, INJECTION) [Suspect]
     Indication: ACUTE MYELOID LEUKAEMIA
     Dosage: 3 MG/M^2 1X PER 1 DAY INTRAVENOUS
     Route: 042
     Dates: start: 20050101, end: 20050101

REACTIONS (10)
  - BALANCE DISORDER [None]
  - CHILLS [None]
  - DYSPHAGIA [None]
  - FAECAL INCONTINENCE [None]
  - GAIT DISTURBANCE [None]
  - HYPOREFLEXIA [None]
  - NEUTROPENIA [None]
  - PERIPHERAL SENSORIMOTOR NEUROPATHY [None]
  - PYREXIA [None]
  - URINARY INCONTINENCE [None]
